FAERS Safety Report 10188978 (Version 1)
Quarter: 2014Q2

REPORT INFORMATION
  Report Type: Spontaneous
  Country: US (occurrence: None)
  Receive Date: 20140521
  Receipt Date: 20140521
  Transmission Date: 20141212
  Serious: Yes (Hospitalization)
  Sender: FDA-Public Use
  Company Number: None

PATIENT
  Age: 47 Year
  Sex: 0

DRUGS (1)
  1. VENLAFAXINE HCL ER [Suspect]
     Indication: ANXIETY
     Route: 048
     Dates: start: 20140502, end: 20140502

REACTIONS (10)
  - Cold sweat [None]
  - Nausea [None]
  - Vomiting [None]
  - Paraesthesia [None]
  - Swollen tongue [None]
  - Dry mouth [None]
  - Tremor [None]
  - Hypoaesthesia [None]
  - Palpitations [None]
  - Drug hypersensitivity [None]
